FAERS Safety Report 15136757 (Version 2)
Quarter: 2018Q4

REPORT INFORMATION
  Report Type: Report from Study
  Country: JP (occurrence: JP)
  Receive Date: 20180712
  Receipt Date: 20181009
  Transmission Date: 20190204
  Serious: Yes (Death)
  Sender: FDA-Public Use
  Company Number: JP-BAUSCH-BL-2018-019219

PATIENT
  Age: 48 Year
  Sex: Male
  Weight: 46 kg

DRUGS (5)
  1. CHOREAZINE [Suspect]
     Active Substance: TETRABENAZINE
     Indication: HUNTINGTON^S DISEASE
     Route: 048
     Dates: start: 20170804, end: 2017
  2. CHOREAZINE [Suspect]
     Active Substance: TETRABENAZINE
     Route: 048
     Dates: start: 20170929, end: 20171026
  3. ABILIFY [Concomitant]
     Active Substance: ARIPIPRAZOLE
     Indication: PRODUCT USED FOR UNKNOWN INDICATION
     Route: 048
     Dates: start: 20150523, end: 20180615
  4. CHOREAZINE [Suspect]
     Active Substance: TETRABENAZINE
     Route: 048
     Dates: start: 20171027, end: 20180616
  5. CHOREAZINE [Suspect]
     Active Substance: TETRABENAZINE
     Route: 048
     Dates: start: 2017, end: 20170928

REACTIONS (1)
  - Myocardial infarction [Fatal]

NARRATIVE: CASE EVENT DATE: 20180617
